FAERS Safety Report 7813743-4 (Version None)
Quarter: 2011Q4

REPORT INFORMATION
  Report Type: 
  Country: None (occurrence: None)
  Receive Date: 20111014
  Receipt Date: 20111010
  Transmission Date: 20120403
  Serious: Yes (Other)
  Sender: FDA-Public Use
  Company Number: US-VERTEX PHARMACEUTICALS INC.-AE-2011-002181

PATIENT
  Sex: Female
  Weight: 44.946 kg

DRUGS (3)
  1. INCIVEK [Suspect]
     Indication: HEPATITIS C
     Dates: start: 20110729
  2. RIBAVIRIN [Concomitant]
     Indication: HEPATITIS C
     Dates: start: 20110729
  3. PEGASYS [Concomitant]
     Indication: HEPATITIS C
     Dates: start: 20110729

REACTIONS (4)
  - ALTERED STATE OF CONSCIOUSNESS [None]
  - ANAEMIA [None]
  - FATIGUE [None]
  - DYSPNOEA [None]
